FAERS Safety Report 6241786-3 (Version None)
Quarter: 2009Q2

REPORT INFORMATION
  Report Type: 
  Country: None (occurrence: None)
  Receive Date: 20090623
  Receipt Date: 20090611
  Transmission Date: 20091009
  Serious: Yes (Hospitalization)
  Sender: FDA-Public Use
  Company Number: GB-MYLANLABS-2009S1010492

PATIENT
  Age: 4 Year
  Sex: Female

DRUGS (4)
  1. VALPROIC ACID SYRUP [Suspect]
     Indication: EPILEPSY
     Route: 048
  2. AZITHROMYCIN [Concomitant]
     Indication: DRUG USE FOR UNKNOWN INDICATION
  3. DOMPERIDONE [Concomitant]
     Indication: DRUG USE FOR UNKNOWN INDICATION
  4. RANITIDINE [Concomitant]
     Indication: DRUG USE FOR UNKNOWN INDICATION

REACTIONS (2)
  - PANCREATIC PSEUDOCYST [None]
  - PANCREATITIS [None]
